FAERS Safety Report 20362781 (Version 1)
Quarter: 2022Q1

REPORT INFORMATION
  Report Type: Spontaneous
  Country: US (occurrence: None)
  Receive Date: 20220120
  Receipt Date: 20220120
  Transmission Date: 20220424
  Serious: Yes (Life-Threatening, Other)
  Sender: FDA-Public Use
  Company Number: None

PATIENT
  Age: 30 Year
  Sex: Female

DRUGS (1)
  1. BAMLANIVIMAB\ETESEVIMAB [Suspect]
     Active Substance: BAMLANIVIMAB\ETESEVIMAB
     Indication: COVID-19
     Route: 041
     Dates: start: 20211218, end: 20211218

REACTIONS (8)
  - Maternal exposure during pregnancy [None]
  - Infusion related reaction [None]
  - Flushing [None]
  - Feeling hot [None]
  - Tachycardia [None]
  - Vaginal haemorrhage [None]
  - Foetal exposure during pregnancy [None]
  - Uterine spasm [None]

NARRATIVE: CASE EVENT DATE: 20211218
